FAERS Safety Report 4559541-9 (Version None)
Quarter: 2005Q1

REPORT INFORMATION
  Report Type: 
  Country: None (occurrence: None)
  Receive Date: 20050124
  Receipt Date: 20050119
  Transmission Date: 20050727
  Serious: Yes (Life-Threatening)
  Sender: FDA-Public Use
  Company Number: FR-GLAXOSMITHKLINE-B0364903A

PATIENT
  Age: 76 Year
  Sex: Female

DRUGS (5)
  1. CLAMOXYL [Suspect]
     Indication: FATIGUE
     Route: 048
     Dates: start: 20050101, end: 20050101
  2. SYMBICORT [Concomitant]
     Route: 065
  3. NOCTRAN [Concomitant]
     Route: 065
  4. EQUANIL [Concomitant]
     Route: 065
  5. ALDACTAZINE [Concomitant]
     Route: 065

REACTIONS (2)
  - ANAPHYLACTIC SHOCK [None]
  - INTENTIONAL MISUSE [None]
